FAERS Safety Report 7624266-X (Version None)
Quarter: 2011Q3

REPORT INFORMATION
  Report Type: 
  Country: None (occurrence: None)
  Receive Date: 20110720
  Receipt Date: 20100722
  Transmission Date: 20111222
  Serious: Yes (Hospitalization, Other)
  Sender: FDA-Public Use
  Company Number: US-BAYER-201029044NA

PATIENT
  Age: 46 Year
  Sex: Male
  Weight: 102.4 kg

DRUGS (10)
  1. LASIX [Concomitant]
     Dosage: UNK
     Dates: start: 19970822
  2. TRASYLOL [Suspect]
     Indication: CORONARY REVASCULARISATION
     Dosage: 1 ML TEST DOSE
     Route: 042
     Dates: start: 19970822, end: 19970822
  3. PROPOFOL [Concomitant]
     Dosage: 200 MG, UNK
     Dates: start: 19970822, end: 19970822
  4. ZINACEF [Concomitant]
     Dosage: 1 G, UNK
     Route: 042
     Dates: start: 19970822, end: 19970822
  5. TRASYLOL [Suspect]
     Dosage: 200 ML, LOADING DOSE
     Route: 042
     Dates: start: 19970822, end: 19970822
  6. HEPARIN [Concomitant]
     Dosage: 50 U, UNK
     Route: 042
     Dates: start: 19970822, end: 19970822
  7. PROTAMINE SULFATE [Concomitant]
     Dosage: 500 MG, UNK
     Route: 042
     Dates: start: 19970822, end: 19970822
  8. ZINACEF [Concomitant]
     Dosage: 1.5 G, UNK
     Route: 042
     Dates: start: 19970822, end: 19970822
  9. CONTRAST MEDIA [Concomitant]
     Dosage: 239 ML, UNK
     Dates: start: 19970821
  10. TRASYLOL [Suspect]
     Dosage: 200 ML, PUMP PRIME
     Dates: start: 19970822, end: 19970822

REACTIONS (10)
  - ANXIETY [None]
  - FEAR [None]
  - ANHEDONIA [None]
  - RENAL FAILURE [None]
  - PAIN [None]
  - EMOTIONAL DISTRESS [None]
  - RENAL INJURY [None]
  - STRESS [None]
  - RENAL IMPAIRMENT [None]
  - UNEVALUABLE EVENT [None]
